FAERS Safety Report 9664822 (Version 3)
Quarter: 2014Q1

REPORT INFORMATION
  Report Type: Report from Study
  Country: JP (occurrence: JP)
  Receive Date: 20131101
  Receipt Date: 20140228
  Transmission Date: 20141002
  Serious: Yes (Death, Other)
  Sender: FDA-Public Use
  Company Number: JP-TAKEDA-2013TJP002347

PATIENT
  Age: 89 Year
  Sex: Female
  Weight: 150 kg

DRUGS (6)
  1. LANSOPRAZOLE [Suspect]
     Indication: PROPHYLAXIS AGAINST GASTROINTESTINAL ULCER
     Dosage: 15 MG, QD
     Route: 048
     Dates: start: 20120926, end: 20121220
  2. BLOPRESS [Concomitant]
     Dosage: 8 MG, 1 DAYS
     Route: 048
     Dates: start: 20120926
  3. BAYASPIRIN [Concomitant]
     Indication: THROMBOSIS PROPHYLAXIS
     Dosage: 100 MG, 1 DAYS
     Route: 048
     Dates: start: 20120926, end: 20121220
  4. LASIX                              /00032601/ [Concomitant]
     Dosage: 20 MG, 1 DAYS
     Route: 048
     Dates: start: 20120926
  5. SAMSCA [Concomitant]
     Indication: CARDIAC FAILURE CONGESTIVE
     Dosage: 15 MG, 1 DAYS
     Route: 048
     Dates: start: 20121004
  6. URITOS OD [Concomitant]
     Dosage: 0.2 MG, 1 DAYS
     Route: 048
     Dates: start: 20121017

REACTIONS (1)
  - Lymphoma [Fatal]
